FAERS Safety Report 4320218-6 (Version None)
Quarter: 2004Q1

REPORT INFORMATION
  Report Type: 
  Country: None (occurrence: None)
  Receive Date: 20040317
  Receipt Date: 20040303
  Transmission Date: 20041129
  Serious: Yes (Other)
  Sender: FDA-Public Use
  Company Number: ZANA001140

PATIENT
  Age: 82 Year
  Sex: Female

DRUGS (6)
  1. TIZANIDINE HCL [Suspect]
     Indication: NECK PAIN
     Dosage: 4 MG DAILY ORAL
     Route: 048
     Dates: start: 20011227, end: 20020101
  2. RYTMONORM (PROPAFENONE HYDROCHLORIDE) [Concomitant]
  3. NORVASC [Concomitant]
  4. TICLOPIDINE (TICLOPIDINE HYDROCHLORIDE) [Concomitant]
  5. LOSARTAN (LOSARTAN POTASSIUM) [Concomitant]
  6. HYDROCHLOROTHIAZIDE [Concomitant]

REACTIONS (3)
  - AMNESIA [None]
  - APTYALISM [None]
  - DIZZINESS POSTURAL [None]
